FAERS Safety Report 5582699-X (Version None)
Quarter: 2008Q1

REPORT INFORMATION
  Report Type: 
  Country: None (occurrence: None)
  Receive Date: 20080107
  Receipt Date: 20071227
  Transmission Date: 20080703
  Serious: Yes (Hospitalization, Other)
  Sender: FDA-Public Use
  Company Number: FR-BRISTOL-MYERS SQUIBB COMPANY-13983341

PATIENT
  Age: 51 Year
  Sex: Female

DRUGS (14)
  1. ENDOXAN [Suspect]
     Indication: MIXED CONNECTIVE TISSUE DISEASE
     Dosage: 26-JUN-2007, 26-AUG-2007, 30-AUG-2007,  25-SEP-2007 AND 07-NOV-2007.
     Route: 042
     Dates: start: 20070427
  2. UROMITEXAN [Suspect]
     Indication: PROPHYLAXIS
     Dosage: 26-JUN-2007,26AUG-2007, 30-AUG-2007, 25-SEP-2007 AND 07-NOV-2007.
     Route: 042
     Dates: start: 20070427
  3. UROMITEXAN [Suspect]
     Indication: MIXED CONNECTIVE TISSUE DISEASE
     Dosage: 26-JUN-2007,26AUG-2007, 30-AUG-2007, 25-SEP-2007 AND 07-NOV-2007.
     Route: 042
     Dates: start: 20070427
  4. METHOTREXATE [Suspect]
     Dates: start: 20000101, end: 20070427
  5. ZOPHREN [Suspect]
     Indication: MIXED CONNECTIVE TISSUE DISEASE
     Dosage: 26-JUN-2007, 26AUG-2007, 30-AUG-2007, 25-SEP-2007 AND 07-NOV-2007.
     Route: 042
     Dates: start: 20070427
  6. PLAQUENIL [Concomitant]
     Indication: PANNICULITIS
     Route: 048
     Dates: start: 20030311
  7. PRAXILENE [Concomitant]
     Dosage: 2 DF = 200MG
     Route: 048
  8. CHRONADALATE [Concomitant]
     Route: 048
  9. LEVOTHYROX [Concomitant]
     Route: 048
  10. PERINDOPRIL ERBUMINE [Concomitant]
     Route: 048
  11. ESOMEPRAZOLE [Concomitant]
     Route: 048
  12. KARDEGIC [Concomitant]
     Route: 048
  13. CORTANCYL [Concomitant]
     Route: 048
  14. MOPRAL [Concomitant]
     Route: 048

REACTIONS (13)
  - BACK PAIN [None]
  - CHILLS [None]
  - CYANOSIS [None]
  - DYSPNOEA [None]
  - ERYTHEMA [None]
  - FACE OEDEMA [None]
  - HEADACHE [None]
  - PARAESTHESIA [None]
  - PYREXIA [None]
  - RASH [None]
  - SHOCK [None]
  - THROAT IRRITATION [None]
  - VOMITING [None]
